FAERS Safety Report 13888418 (Version 1)
Quarter: 2017Q3

REPORT INFORMATION
  Report Type: Spontaneous
  Country: US (occurrence: US)
  Receive Date: 20170821
  Receipt Date: 20170821
  Transmission Date: 20171127
  Serious: Yes (Hospitalization)
  Sender: FDA-Public Use
  Company Number: US-BAUSCH-BL-2017-024464

PATIENT
  Age: 17 Year
  Sex: Female
  Weight: 59.1 kg

DRUGS (6)
  1. XIFAXAN [Concomitant]
     Active Substance: RIFAXIMIN
     Indication: HEPATIC ENCEPHALOPATHY
     Route: 048
     Dates: start: 201704, end: 20170815
  2. MELATONIN [Concomitant]
     Active Substance: MELATONIN
     Indication: SLEEP DISORDER
     Dosage: AT BEDTIME
     Route: 048
     Dates: start: 201704, end: 20170815
  3. VITAMIN K [Concomitant]
     Active Substance: PHYTONADIONE
     Indication: INTERNATIONAL NORMALISED RATIO ABNORMAL
  4. VITAMIN K [Concomitant]
     Active Substance: PHYTONADIONE
     Indication: HEPATIC CIRRHOSIS
     Route: 048
     Dates: start: 201704, end: 20170815
  5. SYPRINE [Suspect]
     Active Substance: TRIENTINE HYDROCHLORIDE
     Indication: HEPATO-LENTICULAR DEGENERATION
     Dosage: STARTED A COUPLE MONTHS AGO
     Route: 048
     Dates: start: 201706, end: 20170815
  6. LACTULOSE. [Concomitant]
     Active Substance: LACTULOSE
     Indication: HEPATIC ENCEPHALOPATHY
     Route: 048
     Dates: start: 201704, end: 20170815

REACTIONS (1)
  - Peritonitis bacterial [Recovering/Resolving]
